FAERS Safety Report 25892545 (Version 2)
Quarter: 2025Q4

REPORT INFORMATION
  Report Type: Spontaneous
  Country: EU (occurrence: EU)
  Receive Date: 20251007
  Receipt Date: 20251010
  Transmission Date: 20260117
  Serious: No
  Sender: MERCK SHARP & DOHME LLC
  Company Number: EU-009507513-2335308

PATIENT
  Age: 65 Year
  Sex: Male

DRUGS (1)
  1. LAGEVRIO [Suspect]
     Active Substance: MOLNUPIRAVIR
     Indication: COVID-19
     Dosage: LAGEVRIO 200 MG; 4 CAPSULES EVERY 12 HOURS FOR A TOTAL OF 5 DAYS
     Route: 048

REACTIONS (2)
  - Pruritus [Recovered/Resolved]
  - Product use complaint [Unknown]
